FAERS Safety Report 24303918 (Version 1)
Quarter: 2024Q3

REPORT INFORMATION
  Report Type: Report from Study
  Country: ZA (occurrence: None)
  Receive Date: 20240910
  Receipt Date: 20240910
  Transmission Date: 20241017
  Serious: Yes (Other)
  Sender: ASTRAZENECA
  Company Number: 2024A200606

PATIENT
  Age: 25932 Day
  Sex: Female

DRUGS (8)
  1. BUDESONIDE\FORMOTEROL [Suspect]
     Active Substance: BUDESONIDE\FORMOTEROL
     Indication: Asthma
     Dosage: 120 DOSE 160/4.5 MCG, UNKNOWN UNKNOWN
     Route: 055
  2. PANTOPRAZOLE SODIUM [Concomitant]
     Active Substance: PANTOPRAZOLE SODIUM
     Indication: Ulcer
  3. LIPOGEN [Concomitant]
     Indication: Blood cholesterol
  4. RINELON [Concomitant]
     Indication: Hypersensitivity
     Dosage: 140 DOSE 50 MCG
  5. LOSARTAN POTASSIUM [Concomitant]
     Active Substance: LOSARTAN POTASSIUM
     Indication: Cardiac disorder
  6. PENDINE [Concomitant]
     Indication: Hypertension
  7. EUTHYROX [Concomitant]
     Active Substance: LEVOTHYROXINE SODIUM
     Indication: Hypothyroidism
     Dosage: 50 MCG
  8. ECOTRIN [Concomitant]
     Active Substance: ASPIRIN
     Indication: Blood test

REACTIONS (1)
  - Lower limb fracture [Unknown]
